FAERS Safety Report 25182406 (Version 1)
Quarter: 2025Q2

REPORT INFORMATION
  Report Type: Spontaneous
  Country: US (occurrence: US)
  Receive Date: 20250410
  Receipt Date: 20250410
  Transmission Date: 20250716
  Serious: No
  Sender: KINIKSA PHARMACEUTICALS
  Company Number: US-Kiniksa Pharmaceuticals Ltd.-2024KPU002246

PATIENT
  Age: 79 Year
  Sex: Female

DRUGS (1)
  1. ARCALYST [Suspect]
     Active Substance: RILONACEPT
     Indication: Pericarditis
     Route: 058
     Dates: start: 202405

REACTIONS (10)
  - Blood sodium abnormal [Unknown]
  - Blood sodium decreased [Unknown]
  - Cortisol increased [Unknown]
  - Pericarditis [Unknown]
  - Inappropriate schedule of product administration [Unknown]
  - Blood potassium decreased [Unknown]
  - Inflammation [Unknown]
  - Palpitations [Unknown]
  - Anxiety [Unknown]
  - Immunosuppression [Unknown]

NARRATIVE: CASE EVENT DATE: 20240501
